FAERS Safety Report 25787596 (Version 2)
Quarter: 2025Q4

REPORT INFORMATION
  Report Type: Spontaneous
  Country: US (occurrence: US)
  Receive Date: 20250910
  Receipt Date: 20251013
  Transmission Date: 20260117
  Serious: No
  Sender: AMGEN
  Company Number: US-AMGEN-USASP2025175612

PATIENT
  Age: 73 Year
  Sex: Male
  Weight: 69 kg

DRUGS (1)
  1. NEULASTA [Suspect]
     Active Substance: PEGFILGRASTIM
     Indication: Neutropenia
     Dosage: UNK
     Route: 065

REACTIONS (1)
  - Device use error [Unknown]

NARRATIVE: CASE EVENT DATE: 20250818
